FAERS Safety Report 4426291-9 (Version None)
Quarter: 2004Q3

REPORT INFORMATION
  Report Type: 
  Country: None (occurrence: None)
  Receive Date: 20040811
  Receipt Date: 20040722
  Transmission Date: 20050211
  Serious: Yes (Hospitalization)
  Sender: FDA-Public Use
  Company Number: EWC040740063

PATIENT
  Age: 46 Year
  Sex: Male

DRUGS (2)
  1. CECLOR [Suspect]
     Indication: BRONCHITIS
     Dosage: 750 MG/2 DAY
     Dates: start: 20040701, end: 20040701
  2. BISOLVON (BROMHEXINE HYDROCHLORIDE) [Concomitant]

REACTIONS (3)
  - BRONCHOSPASM [None]
  - CHEST PAIN [None]
  - HYPERHIDROSIS [None]
